FAERS Safety Report 25137910 (Version 1)
Quarter: 2025Q1

REPORT INFORMATION
  Report Type: Spontaneous
  Country: FR (occurrence: FR)
  Receive Date: 20250329
  Receipt Date: 20250329
  Transmission Date: 20250408
  Serious: Yes (Other)
  Sender: TEVA
  Company Number: None

PATIENT
  Age: 82 Year
  Sex: Female
  Weight: 45 kg

DRUGS (3)
  1. RAMIPRIL [Suspect]
     Active Substance: RAMIPRIL
     Indication: Hypertension
     Route: 048
     Dates: start: 20241011
  2. DILTIAZEM [Suspect]
     Active Substance: DILTIAZEM
     Indication: Hypertension
     Dosage: DILTIAZEM HYDROCHLORIDE
     Route: 048
     Dates: start: 20240923
  3. DILTIAZEM HYDROCHLORIDE [Suspect]
     Active Substance: DILTIAZEM HYDROCHLORIDE
     Indication: Hypertension
     Dosage: 2X 120MG/D, BI TILDIEM LP. PROLONGED-RELEASE COATED TABLET
     Route: 048
     Dates: end: 20240923

REACTIONS (3)
  - Retinal vein occlusion [Unknown]
  - Blood pressure inadequately controlled [Unknown]
  - Product availability issue [Unknown]

NARRATIVE: CASE EVENT DATE: 20240923
